FAERS Safety Report 18960331 (Version 1)
Quarter: 2021Q1

REPORT INFORMATION
  Report Type: Spontaneous
  Country: GB (occurrence: GB)
  Receive Date: 20210303
  Receipt Date: 20210303
  Transmission Date: 20210420
  Serious: Yes (Other)
  Sender: FDA-Public Use
  Company Number: GB-B.I. PHARMACEUTICALS,INC./RIDGEFIELD-2021-BI-085804

PATIENT
  Age: 56 Year
  Sex: Male
  Weight: 104 kg

DRUGS (7)
  1. QVAR [Concomitant]
     Active Substance: BECLOMETHASONE DIPROPIONATE
     Indication: ILL-DEFINED DISORDER
     Dosage: INHALE 1?2 DOSE TWICE DAILY
     Route: 065
     Dates: start: 20200825, end: 20210112
  2. CANDESARTAN. [Concomitant]
     Active Substance: CANDESARTAN
     Indication: ILL-DEFINED DISORDER
     Dosage: TAKE ONE ONCE DAILY
     Route: 065
     Dates: start: 20200825, end: 20201118
  3. LANSOPRAZOLE. [Concomitant]
     Active Substance: LANSOPRAZOLE
     Indication: ILL-DEFINED DISORDER
     Dosage: TAKE ONE TWICE DAILY
     Route: 065
     Dates: start: 20200825
  4. AMLODIPINE [Concomitant]
     Active Substance: AMLODIPINE BESYLATE
     Indication: ILL-DEFINED DISORDER
     Dosage: TAKE ONE EVERY MORNING TO REDUCE BLOOD PRESSURE
     Route: 065
     Dates: start: 20201118
  5. SALBUTAMOL [Concomitant]
     Active Substance: ALBUTEROL
     Indication: ILL-DEFINED DISORDER
     Dosage: INHALE 2 DOSES AS NEEDED UP TO FOUR TIMES DAILY
     Route: 065
     Dates: start: 20191202
  6. SPIRIVA [Suspect]
     Active Substance: TIOTROPIUM BROMIDE MONOHYDRATE
     Indication: PRODUCT USED FOR UNKNOWN INDICATION
     Dosage: PUFFS
     Route: 055
     Dates: start: 20210112, end: 20210201
  7. FOSTAIR [Concomitant]
     Active Substance: BECLOMETHASONE\FORMOTEROL
     Indication: ILL-DEFINED DISORDER
     Dosage: INHALE TWO DOSES TWICE A DAY
     Route: 065
     Dates: start: 20210112

REACTIONS (1)
  - Neurological symptom [Recovered/Resolved]

NARRATIVE: CASE EVENT DATE: 20210212
